FAERS Safety Report 7815736-X (Version None)
Quarter: 2011Q4

REPORT INFORMATION
  Report Type: 
  Country: None (occurrence: None)
  Receive Date: 20111014
  Receipt Date: 20111013
  Transmission Date: 20120403
  Serious: Yes (Hospitalization, Other)
  Sender: FDA-Public Use
  Company Number: CH-ABBOTT-11P-151-0728860-00

PATIENT
  Age: 57 Year
  Sex: Female
  Weight: 50 kg

DRUGS (2)
  1. TRUVADA [Interacting]
     Indication: HIV INFECTION
     Route: 048
  2. KALETRA [Suspect]
     Indication: HIV INFECTION
     Route: 048

REACTIONS (17)
  - HYPOPHOSPHATAEMIA [None]
  - DECREASED APPETITE [None]
  - WEIGHT DECREASED [None]
  - HYPOKALAEMIA [None]
  - DRUG INTERACTION [None]
  - RENAL FAILURE [None]
  - PROTEINURIA [None]
  - GLYCOSURIA [None]
  - GLOMERULONEPHROPATHY [None]
  - RENAL IMPAIRMENT [None]
  - FANCONI SYNDROME [None]
  - RENAL TUBULAR ATROPHY [None]
  - ANAEMIA [None]
  - RENAL TUBULAR ACIDOSIS [None]
  - LYMPHOPENIA [None]
  - HAEMATURIA [None]
  - KIDNEY FIBROSIS [None]
